FAERS Safety Report 13060469 (Version 1)
Quarter: 2016Q4

REPORT INFORMATION
  Report Type: Spontaneous
  Country: GR (occurrence: GR)
  Receive Date: 20161224
  Receipt Date: 20161224
  Transmission Date: 20170207
  Serious: Yes (Death, Life-Threatening, Other)
  Sender: FDA-Public Use
  Company Number: GR-ACCORD-046792

PATIENT
  Age: 39 Year
  Sex: Male

DRUGS (7)
  1. PREDNISOLONE. [Suspect]
     Active Substance: PREDNISOLONE
     Indication: PUSTULAR PSORIASIS
     Dosage: 200 MG IV ON 1ST POD,TAPERED TO 20 MG/D ORALLY WITHIN 2 WEEKS AND TO 10 MG/D WITHIN 1 MONTH
     Route: 048
  2. TACROLIMUS. [Suspect]
     Active Substance: TACROLIMUS
     Indication: RENAL TRANSPLANT
  3. DACLIZUMAB [Suspect]
     Active Substance: DACLIZUMAB
     Indication: RENAL TRANSPLANT
  4. METHOTREXATE. [Suspect]
     Active Substance: METHOTREXATE
     Indication: PUSTULAR PSORIASIS
     Dosage: ON DAYS 39 AND 46 POSTOPERATIVELY
     Route: 042
  5. MYCOPHENOLIC ACID. [Suspect]
     Active Substance: MYCOPHENOLIC ACID
     Indication: RENAL TRANSPLANT
  6. CICLOSPORIN [Suspect]
     Active Substance: CYCLOSPORINE
     Indication: RENAL TRANSPLANT
  7. METHYLPREDNISOLONE. [Concomitant]
     Active Substance: METHYLPREDNISOLONE
     Indication: PUSTULAR PSORIASIS
     Route: 042

REACTIONS (7)
  - Multiple organ dysfunction syndrome [Fatal]
  - Pustular psoriasis [Unknown]
  - Respiratory distress [Unknown]
  - Disseminated intravascular coagulation [Unknown]
  - Pancytopenia [Unknown]
  - Oliguria [Unknown]
  - Sepsis [Unknown]
